FAERS Safety Report 12726413 (Version 2)
Quarter: 2016Q3

REPORT INFORMATION
  Report Type: Spontaneous
  Country: US (occurrence: US)
  Receive Date: 20160908
  Receipt Date: 20160914
  Transmission Date: 20161109
  Serious: Yes (Other)
  Sender: FDA-Public Use
  Company Number: US-MYLANLABS-2016M1037736

PATIENT

DRUGS (2)
  1. BISOPROLOL FUMARATE TABLETS, USP [Suspect]
     Active Substance: BISOPROLOL FUMARATE
     Indication: TACHYCARDIA
     Dosage: 1.25 MG, UNK
     Dates: end: 2016
  2. PAROXETINE ZYDUS [Suspect]
     Active Substance: PAROXETINE
     Dosage: 10 MG, UNK

REACTIONS (3)
  - Serotonin syndrome [Unknown]
  - Hypertension [Unknown]
  - Tachycardia [Unknown]
